FAERS Safety Report 8584267-4 (Version None)
Quarter: 2012Q3

REPORT INFORMATION
  Report Type: 
  Country: None (occurrence: None)
  Receive Date: 20120810
  Receipt Date: 20120801
  Transmission Date: 20120928
  Serious: Yes (Hospitalization)
  Sender: FDA-Public Use
  Company Number: US-BIOGENIDEC-2006BI001348

PATIENT
  Age: 42 Year
  Sex: Female

DRUGS (1)
  1. AVONEX [Suspect]
     Indication: MULTIPLE SCLEROSIS
     Route: 030
     Dates: start: 19981201

REACTIONS (9)
  - THROMBOSIS [None]
  - BACK PAIN [None]
  - SCIATICA [None]
  - PARAESTHESIA [None]
  - PAIN IN EXTREMITY [None]
  - MITRAL VALVE INCOMPETENCE [None]
  - CONTUSION [None]
  - INTERVERTEBRAL DISC PROTRUSION [None]
  - INCREASED TENDENCY TO BRUISE [None]
